FAERS Safety Report 7924450-1 (Version None)
Quarter: 2011Q4

REPORT INFORMATION
  Report Type: 
  Country: None (occurrence: None)
  Receive Date: 20111117
  Receipt Date: 20110322
  Transmission Date: 20120403
  Serious: No
  Sender: FDA-Public Use
  Company Number: US-AMGEN-USASP2011009407

PATIENT
  Age: 41 Year
  Sex: Female
  Weight: 200 kg

DRUGS (2)
  1. ENBREL [Suspect]
     Indication: RHEUMATOID ARTHRITIS
     Dosage: 25 MG, 2 TIMES/WK
     Route: 058
     Dates: start: 20020801
  2. PRENATAL                           /02014401/ [Concomitant]
     Dosage: UNK UNK, QD
     Route: 048

REACTIONS (5)
  - THERAPEUTIC RESPONSE DECREASED [None]
  - POOR QUALITY SLEEP [None]
  - WEIGHT INCREASED [None]
  - PHARYNGITIS STREPTOCOCCAL [None]
  - RHEUMATOID ARTHRITIS [None]
